FAERS Safety Report 9027695 (Version 1)
Quarter: 2013Q1

REPORT INFORMATION
  Report Type: Spontaneous
  Country: IT (occurrence: IT)
  Receive Date: 20130124
  Receipt Date: 20130124
  Transmission Date: 20140127
  Serious: Yes (Other)
  Sender: FDA-Public Use
  Company Number: IT-ACCORD-016036

PATIENT
  Age: 71 Year
  Sex: Male

DRUGS (4)
  1. GEMCITABINE [Suspect]
     Indication: BILIARY NEOPLASM
     Dosage: DRUG ONGOING
     Route: 042
     Dates: start: 20121210, end: 20121210
  2. ONDANSETRON [Concomitant]
     Route: 042
     Dates: start: 20121210, end: 20121210
  3. SOLDESAM [Concomitant]
     Route: 042
     Dates: start: 20121210, end: 20121210
  4. RANIDIL [Concomitant]
     Dates: start: 20121210, end: 20121210

REACTIONS (5)
  - Diarrhoea [Recovering/Resolving]
  - Fatigue [Recovering/Resolving]
  - Groin pain [Recovering/Resolving]
  - Back pain [Recovering/Resolving]
  - Off label use [Unknown]
